FAERS Safety Report 6848900-7 (Version None)
Quarter: 2010Q3

REPORT INFORMATION
  Report Type: 
  Country: None (occurrence: None)
  Receive Date: 20100716
  Receipt Date: 20070921
  Transmission Date: 20110219
  Serious: No
  Sender: FDA-Public Use
  Company Number: US-PFIZER INC-2007080672

PATIENT
  Age: 79 Year
  Sex: Female

DRUGS (3)
  1. CHANTIX [Suspect]
     Indication: SMOKING CESSATION THERAPY
     Route: 048
     Dates: start: 20070701
  2. ALL OTHER THERAPEUTIC PRODUCTS [Concomitant]
     Indication: CARDIAC FAILURE CONGESTIVE
  3. HERBAL NOS/MINERALS NOS [Concomitant]
     Indication: CARDIAC FAILURE CONGESTIVE

REACTIONS (2)
  - DECREASED APPETITE [None]
  - NAUSEA [None]
